FAERS Safety Report 11447149 (Version 2)
Quarter: 2015Q3

REPORT INFORMATION
  Report Type: Report from Study
  Country: US (occurrence: US)
  Receive Date: 20150902
  Receipt Date: 20150914
  Transmission Date: 20151125
  Serious: Yes (Death, Other)
  Sender: FDA-Public Use
  Company Number: US-GILEAD-2015-0169837

PATIENT
  Age: 85 Year
  Sex: Male

DRUGS (10)
  1. PREDNISONE. [Concomitant]
     Active Substance: PREDNISONE
  2. AMBRISENTAN [Suspect]
     Active Substance: AMBRISENTAN
     Indication: PULMONARY ARTERIAL HYPERTENSION
  3. OXYGEN. [Concomitant]
     Active Substance: OXYGEN
  4. SILDENAFIL. [Concomitant]
     Active Substance: SILDENAFIL
  5. MORPHINE [Concomitant]
     Active Substance: MORPHINE
  6. FUROSEMIDE. [Concomitant]
     Active Substance: FUROSEMIDE
  7. DIGOXIN. [Concomitant]
     Active Substance: DIGOXIN
  8. AMBRISENTAN [Suspect]
     Active Substance: AMBRISENTAN
     Indication: CHRONIC OBSTRUCTIVE PULMONARY DISEASE
  9. AMBRISENTAN [Suspect]
     Active Substance: AMBRISENTAN
     Indication: COR PULMONALE CHRONIC
     Dosage: 10 MG, QD
     Route: 048
     Dates: start: 201108, end: 201507
  10. AMBRISENTAN [Suspect]
     Active Substance: AMBRISENTAN
     Indication: PULMONARY ARTERIAL HYPERTENSION

REACTIONS (2)
  - Pulmonary hypertension [Fatal]
  - Cardiac failure [Fatal]
